FAERS Safety Report 19657688 (Version 1)
Quarter: 2021Q3

REPORT INFORMATION
  Report Type: Spontaneous
  Country: PH (occurrence: PH)
  Receive Date: 20210804
  Receipt Date: 20210804
  Transmission Date: 20211014
  Serious: Yes (Death, Other)
  Sender: FDA-Public Use
  Company Number: PH-ROCHE-2883695

PATIENT
  Age: 87 Year
  Sex: Female

DRUGS (1)
  1. TOCILIZUMAB. [Suspect]
     Active Substance: TOCILIZUMAB
     Indication: COVID-19 PNEUMONIA
     Route: 042
     Dates: start: 20210503, end: 20210503

REACTIONS (4)
  - Death [Fatal]
  - Off label use [Unknown]
  - Myocardial infarction [Unknown]
  - Oxygen saturation decreased [Unknown]
